FAERS Safety Report 26162849 (Version 2)
Quarter: 2025Q4

REPORT INFORMATION
  Report Type: Spontaneous
  Country: US (occurrence: US)
  Receive Date: 20251216
  Receipt Date: 20251216
  Transmission Date: 20260117
  Serious: Yes (Hospitalization, Other)
  Sender: ROCHE
  Company Number: US-ROCHE-10000452933

PATIENT
  Sex: Female

DRUGS (3)
  1. ACTEMRA [Suspect]
     Active Substance: TOCILIZUMAB
     Indication: Rheumatoid arthritis
     Dosage: STRENGTH: 162 MG/0.9 ML ?DOSE: INJECT 0.9 ML (162 MG)
     Route: 058
     Dates: start: 20240507
  2. ACTEMRA [Suspect]
     Active Substance: TOCILIZUMAB
  3. MYCOPHENOLATE MOFETIL [Concomitant]
     Active Substance: MYCOPHENOLATE MOFETIL

REACTIONS (6)
  - Pneumonia [Unknown]
  - Neoplasm malignant [Unknown]
  - Fatigue [Unknown]
  - Pain [Unknown]
  - Bronchitis [Unknown]
  - Loss of personal independence in daily activities [Unknown]
